FAERS Safety Report 7775880-2 (Version None)
Quarter: 2011Q3

REPORT INFORMATION
  Report Type: 
  Country: None (occurrence: None)
  Receive Date: 20110923
  Receipt Date: 20110912
  Transmission Date: 20111222
  Serious: Yes (Death, Other)
  Sender: FDA-Public Use
  Company Number: JP-ELI_LILLY_AND_COMPANY-JP201109001466

PATIENT
  Sex: Female

DRUGS (7)
  1. LANSOPRAZOLE [Concomitant]
     Dosage: 15 MG, UNK
     Route: 048
  2. FORTEO [Suspect]
     Indication: OSTEOPOROSIS
     Dosage: UNK, UNKNOWN
     Route: 058
  3. TRICHLORMETHIAZIDE [Concomitant]
     Dosage: 1 MG, UNK
     Route: 048
  4. LOSARTAN POTASSIUM [Concomitant]
     Dosage: 25 MG, UNK
     Route: 048
  5. FUROSEMIDE [Concomitant]
     Dosage: 20 MG, UNK
     Route: 048
  6. FUROSEMIDE [Concomitant]
     Dosage: 40 MG, UNK
     Route: 048
  7. CARVEDILOL [Concomitant]
     Dosage: 1.25 MG, UNK
     Route: 048

REACTIONS (2)
  - PULMONARY HYPERTENSION [None]
  - CARDIAC FAILURE CHRONIC [None]
